FAERS Safety Report 4717259-3 (Version None)
Quarter: 2005Q3

REPORT INFORMATION
  Report Type: 
  Country: None (occurrence: None)
  Receive Date: 20050715
  Receipt Date: 20050630
  Transmission Date: 20060218
  Serious: Yes (Hospitalization)
  Sender: FDA-Public Use
  Company Number: S05-SWI-02368-01

PATIENT
  Age: 51 Year
  Sex: Male

DRUGS (7)
  1. CITALOPRAM HYDROBROMIDE [Suspect]
     Indication: DEPRESSION
     Dosage: 10 MG QD PO
     Route: 048
  2. NEXIUM [Suspect]
     Dosage: 40 MG QD PO
     Route: 048
     Dates: end: 20050614
  3. CELLCEPT [Suspect]
     Indication: LIVER TRANSPLANT
     Dosage: 1 MG BID PO
     Route: 048
     Dates: start: 20040801
  4. PROGRAF [Suspect]
     Indication: LIVER TRANSPLANT
     Dosage: 5 MG BID PO
     Route: 048
     Dates: start: 20040801
  5. BELOC (METOPROLOL TARTRATE) [Concomitant]
  6. PREDNISONE [Concomitant]
  7. KONAKON (PHYTOMENADIONE) [Concomitant]

REACTIONS (2)
  - CHOLESTASIS [None]
  - HEPATIC TRAUMA [None]
